FAERS Safety Report 6849451-6 (Version None)
Quarter: 2010Q3

REPORT INFORMATION
  Report Type: 
  Country: None (occurrence: None)
  Receive Date: 20100716
  Receipt Date: 20070930
  Transmission Date: 20110219
  Serious: No
  Sender: FDA-Public Use
  Company Number: US-PFIZER INC-2007082852

PATIENT
  Age: 30 Year
  Sex: Male
  Weight: 68.181 kg

DRUGS (2)
  1. CHANTIX [Suspect]
     Indication: SMOKING CESSATION THERAPY
     Dates: start: 20070926
  2. RANITIDINE [Concomitant]
     Indication: GASTRIC DISORDER
     Dates: end: 20070928

REACTIONS (5)
  - ABDOMINAL DISCOMFORT [None]
  - AMNESIA [None]
  - FEELING ABNORMAL [None]
  - PALPITATIONS [None]
  - TOOTH DISORDER [None]
